FAERS Safety Report 4732181-4 (Version None)
Quarter: 2005Q3

REPORT INFORMATION
  Report Type: 
  Country: None (occurrence: None)
  Receive Date: 20050725
  Receipt Date: 20040309
  Transmission Date: 20060218
  Serious: Yes (Hospitalization, Other)
  Sender: FDA-Public Use
  Company Number: USA-2004-0013817

PATIENT
  Sex: Male

DRUGS (6)
  1. MS CONTIN [Suspect]
     Indication: PAIN
     Dosage: 15 MG, BID, ORAL
     Route: 048
  2. MORPHINE SULFATE [Suspect]
     Indication: PAIN
     Dosage: INTRAVENOUS
     Route: 042
  3. PREDNISONE [Concomitant]
  4. DURAGESIC-100 [Concomitant]
  5. COUMADIN [Concomitant]
  6. CLONAZEPAM [Concomitant]

REACTIONS (9)
  - ABDOMINAL PAIN [None]
  - ANXIETY [None]
  - DRUG ABUSER [None]
  - DRUG DEPENDENCE [None]
  - PAIN [None]
  - PALPITATIONS [None]
  - PHARYNGOLARYNGEAL PAIN [None]
  - RHINORRHOEA [None]
  - SNEEZING [None]
